FAERS Safety Report 17765326 (Version 4)
Quarter: 2021Q3

REPORT INFORMATION
  Report Type: Spontaneous
  Country: US (occurrence: US)
  Receive Date: 20200511
  Receipt Date: 20210910
  Transmission Date: 20211014
  Serious: Yes (Other)
  Sender: FDA-Public Use
  Company Number: US-PFIZER INC-2020187358

PATIENT
  Age: 79 Year
  Sex: Female

DRUGS (2)
  1. IBRANCE [Suspect]
     Active Substance: PALBOCICLIB
     Dosage: 100 MG
     Dates: start: 20200101
  2. IBRANCE [Suspect]
     Active Substance: PALBOCICLIB
     Indication: METASTASES TO BREAST
     Dosage: 125 MG

REACTIONS (6)
  - Diarrhoea [Not Recovered/Not Resolved]
  - Balance disorder [Unknown]
  - Product dose omission issue [Unknown]
  - Product dispensing error [Unknown]
  - Rib fracture [Unknown]
  - Fatigue [Not Recovered/Not Resolved]
